FAERS Safety Report 8600274 (Version 2)
Quarter: 2013Q2

REPORT INFORMATION
  Report Type: Spontaneous
  Country: US (occurrence: US)
  Receive Date: 20120606
  Receipt Date: 20130617
  Transmission Date: 20140414
  Serious: Yes (Disabling)
  Sender: FDA-Public Use
  Company Number: US-ASTRAZENECA-2012SE35231

PATIENT
  Age: 57 Year
  Sex: Male

DRUGS (24)
  1. NEXIUM [Suspect]
     Indication: GASTROOESOPHAGEAL REFLUX DISEASE
     Route: 048
     Dates: start: 1986
  2. NEXIUM [Suspect]
     Indication: DYSPEPSIA
     Route: 048
     Dates: start: 1986
  3. NEXIUM [Suspect]
     Indication: DYSPEPSIA
     Route: 048
     Dates: start: 1986
  4. NEXIUM [Suspect]
     Indication: GASTROOESOPHAGEAL REFLUX DISEASE
     Route: 048
     Dates: start: 20030531
  5. NEXIUM [Suspect]
     Indication: DYSPEPSIA
     Route: 048
     Dates: start: 20030531
  6. NEXIUM [Suspect]
     Indication: DYSPEPSIA
     Route: 048
     Dates: start: 20030531
  7. ZANTAC [Concomitant]
     Dates: start: 1975
  8. TUMS [Concomitant]
  9. ROLAIDS [Concomitant]
  10. ALKA SELZER [Concomitant]
  11. PEPTO-BISMOL [Concomitant]
  12. MILK OF MAGNESIA [Concomitant]
  13. LOTREL [Concomitant]
     Indication: HYPERTENSION
     Dosage: 10/20 MG
     Dates: start: 20030506
  14. TERAZOSIN [Concomitant]
     Indication: PROSTATOMEGALY
     Dates: start: 20060521
  15. CLONAZEPAM [Concomitant]
     Indication: ANXIETY
     Dates: start: 20070419
  16. GABAPENTIN [Concomitant]
     Indication: BACK PAIN
  17. LORCET [Concomitant]
     Indication: MUSCULOSKELETAL DISCOMFORT
  18. LORCET [Concomitant]
     Indication: MUSCULOSKELETAL DISCOMFORT
  19. BEXTRA [Concomitant]
     Dates: start: 20030603
  20. FLOMAX [Concomitant]
     Dates: start: 20030820
  21. ATENOLOL [Concomitant]
     Dates: start: 20031217
  22. ZYRTEC [Concomitant]
     Dates: start: 20050214
  23. PREDNISONE [Concomitant]
     Dates: start: 20061201
  24. AMITRIPTYLINE [Concomitant]
     Dates: start: 20070522

REACTIONS (8)
  - Back disorder [Unknown]
  - Cervical cord compression [Unknown]
  - Osteoporosis [Unknown]
  - Bone density decreased [Unknown]
  - Upper limb fracture [Unknown]
  - Exostosis [Unknown]
  - Spinal osteoarthritis [Unknown]
  - Bone disorder [Unknown]
